FAERS Safety Report 7036018-2 (Version None)
Quarter: 2010Q4

REPORT INFORMATION
  Report Type: 
  Country: None (occurrence: None)
  Receive Date: 20101008
  Receipt Date: 20101006
  Transmission Date: 20110411
  Serious: Yes (Other)
  Sender: FDA-Public Use
  Company Number: DE-CEPHALON-2010005288

PATIENT
  Sex: Male

DRUGS (1)
  1. MODAFINIL [Suspect]
     Route: 048

REACTIONS (1)
  - ATRIOVENTRICULAR BLOCK COMPLETE [None]
